FAERS Safety Report 24222093 (Version 1)
Quarter: 2024Q3

REPORT INFORMATION
  Report Type: Spontaneous
  Country: US (occurrence: US)
  Receive Date: 20240819
  Receipt Date: 20240819
  Transmission Date: 20241017
  Serious: No
  Sender: BIOCON
  Company Number: US-MIMS-BCONMC-5116

PATIENT

DRUGS (3)
  1. SEMGLEE (INSULIN GLARGINE-YFGN) [Suspect]
     Active Substance: INSULIN GLARGINE-YFGN
     Indication: Type 2 diabetes mellitus
     Dosage: 30 UNITS IN THE MORNING AND 26 UNITS IN  NIGHT TWICE A DAY
     Route: 065
  2. SEMGLEE (INSULIN GLARGINE-YFGN) [Suspect]
     Active Substance: INSULIN GLARGINE-YFGN
     Dosage: 30 UNITS IN THE MORNING AND 26 UNITS IN  NIGHT TWICE A DAY
     Route: 065
  3. INSULIN LISPRO [Concomitant]
     Active Substance: INSULIN LISPRO
     Indication: Type 2 diabetes mellitus
     Dosage: UNK, UNK
     Route: 065

REACTIONS (2)
  - Exposure during pregnancy [Unknown]
  - Device mechanical issue [Unknown]
